FAERS Safety Report 15722862 (Version 1)
Quarter: 2018Q4

REPORT INFORMATION
  Report Type: Spontaneous
  Country: BR (occurrence: BR)
  Receive Date: 20181214
  Receipt Date: 20181214
  Transmission Date: 20190205
  Serious: Yes (Hospitalization, Other)
  Sender: FDA-Public Use
  Company Number: BR-AMGEN-BRASP2018145967

PATIENT
  Age: 51 Year
  Sex: Female
  Weight: 69 kg

DRUGS (6)
  1. LYRICA [Concomitant]
     Active Substance: PREGABALIN
     Dosage: 200 MG, UNK
  2. AMITRIPTYLINE [Concomitant]
     Active Substance: AMITRIPTYLINE
     Indication: DEPRESSION
  3. PROLIA [Suspect]
     Active Substance: DENOSUMAB
     Indication: OSTEOPOROSIS
     Dosage: UNK, Q6MO
     Route: 058
     Dates: start: 201810
  4. VITAMIN D [Concomitant]
     Active Substance: CHOLECALCIFEROL
  5. CYMBALTA [Concomitant]
     Active Substance: DULOXETINE HYDROCHLORIDE
     Dosage: 60 MG, UNK
  6. CYCLOBENZAPRINE. [Concomitant]
     Active Substance: CYCLOBENZAPRINE
     Indication: DEPRESSION

REACTIONS (6)
  - Muscular weakness [Not Recovered/Not Resolved]
  - Condition aggravated [Unknown]
  - Skin lesion [Unknown]
  - Bone swelling [Unknown]
  - Product storage error [Unknown]
  - Bone decalcification [Unknown]

NARRATIVE: CASE EVENT DATE: 2018
